FAERS Safety Report 7516137-4 (Version None)
Quarter: 2011Q2

REPORT INFORMATION
  Report Type: 
  Country: None (occurrence: None)
  Receive Date: 20110520
  Receipt Date: 20110509
  Transmission Date: 20111010
  Serious: Yes (Hospitalization)
  Sender: FDA-Public Use
  Company Number: UTC-006977

PATIENT
  Age: 58 Year
  Sex: Female
  Weight: 88.6 kg

DRUGS (3)
  1. DIURETICS C(DIURETICS) [Concomitant]
  2. LETAIRIS [Concomitant]
  3. TYVASO [Suspect]
     Indication: PULMONARY ARTERIAL HYPERTENSION
     Dosage: 216 MCG (54 MOG,4 IN 1 D), INHALATION
     Route: 055
     Dates: start: 20100506

REACTIONS (2)
  - DYSPNOEA [None]
  - CONDITION AGGRAVATED [None]
